FAERS Safety Report 20941281 (Version 1)
Quarter: 2022Q2

REPORT INFORMATION
  Report Type: Spontaneous
  Country: ES (occurrence: ES)
  Receive Date: 20220609
  Receipt Date: 20220609
  Transmission Date: 20220721
  Serious: Yes (Hospitalization, Other)
  Sender: FDA-Public Use
  Company Number: ES-CELLTRION INC.-2022ES007883

PATIENT

DRUGS (5)
  1. INFLIXIMAB [Suspect]
     Active Substance: INFLIXIMAB
     Indication: Colitis ulcerative
     Dosage: 5 MG/KG, IN COMBINATION WITH AZATHIOPRINE, PHARMACEUTICAL DOSE FORM: UNKNOWN
     Route: 065
  2. INFLIXIMAB [Suspect]
     Active Substance: INFLIXIMAB
     Indication: Colitis ulcerative
     Dosage: 10 MG/KG, PHARMACEUTICAL DOSE FORM: INFUSION
     Route: 065
  3. TOFACITINIB [Suspect]
     Active Substance: TOFACITINIB
     Indication: Colitis ulcerative
     Dosage: 10 MG, EVERY 12 H
     Route: 048
  4. AZATHIOPRINE [Suspect]
     Active Substance: AZATHIOPRINE
     Indication: Colitis ulcerative
     Dosage: IN COMBINATION WITH INFLIXIMAB, PHARMACEUTICAL DOSE FORM: UNKNOWN
     Route: 065
  5. AZATHIOPRINE [Suspect]
     Active Substance: AZATHIOPRINE
     Indication: Colitis ulcerative

REACTIONS (8)
  - Colitis ulcerative [Recovering/Resolving]
  - COVID-19 [Unknown]
  - Malaise [Unknown]
  - Condition aggravated [Recovering/Resolving]
  - Pyrexia [Unknown]
  - Infection susceptibility increased [Unknown]
  - Drug ineffective [Unknown]
  - Overdose [Unknown]
